FAERS Safety Report 12229575 (Version 6)
Quarter: 2017Q4

REPORT INFORMATION
  Report Type: Spontaneous
  Country: US (occurrence: US)
  Receive Date: 20160401
  Receipt Date: 20171206
  Transmission Date: 20180320
  Serious: Yes (Other)
  Sender: FDA-Public Use
  Company Number: US-GLAXOSMITHKLINE-US2016GSK041848

PATIENT
  Age: 55 Year
  Sex: Male
  Weight: 85.26 kg

DRUGS (3)
  1. ASPIRIN. [Concomitant]
     Active Substance: ASPIRIN
  2. LAMICTAL [Suspect]
     Active Substance: LAMOTRIGINE
     Indication: EPILEPSY
     Dosage: 200 MG UNK, U
     Dates: start: 1990
  3. LAMICTAL [Suspect]
     Active Substance: LAMOTRIGINE
     Indication: SEIZURE
     Dosage: 300 MG, U

REACTIONS (8)
  - Headache [Unknown]
  - Neck mass [Unknown]
  - Transient ischaemic attack [Unknown]
  - Partial seizures [Unknown]
  - Drug ineffective [Unknown]
  - Vein disorder [Unknown]
  - Product substitution issue [Unknown]
  - Postictal paralysis [Unknown]

NARRATIVE: CASE EVENT DATE: 201612
